FAERS Safety Report 20575299 (Version 1)
Quarter: 2022Q1

REPORT INFORMATION
  Report Type: Spontaneous
  Country: CO (occurrence: CO)
  Receive Date: 20220310
  Receipt Date: 20220310
  Transmission Date: 20220423
  Serious: Yes (Hospitalization)
  Sender: FDA-Public Use
  Company Number: CO-NOVOPROD-897285

PATIENT
  Age: 63 Year
  Sex: Male
  Weight: 74 kg

DRUGS (5)
  1. AMLODIPINE [Concomitant]
     Active Substance: AMLODIPINE BESYLATE
     Indication: Hypertension
     Dosage: 1 TABLET QD ORALLY
     Dates: start: 2012, end: 202106
  2. LOSARTAN [Concomitant]
     Active Substance: LOSARTAN
     Indication: Hypertension
     Dosage: 1 TABLET QD ORALLY
     Dates: start: 2012, end: 202106
  3. ESOMEPRAZOLE [Concomitant]
     Active Substance: ESOMEPRAZOLE
     Indication: Gastritis prophylaxis
     Dosage: 1 TABLET QD ORALLY
     Dates: start: 2012, end: 202106
  4. METFORMIN [Concomitant]
     Active Substance: METFORMIN HYDROCHLORIDE
     Indication: Type 2 diabetes mellitus
     Dosage: 2 TABLETS QD ORALLY
     Dates: start: 2012, end: 202106
  5. NOVOLIN N [Suspect]
     Active Substance: INSULIN HUMAN
     Indication: Type 2 diabetes mellitus
     Dosage: 2 IU, QD
     Route: 065
     Dates: start: 2012, end: 202106

REACTIONS (2)
  - Peripheral swelling [Recovered/Resolved]
  - Blood creatine abnormal [Recovered/Resolved]

NARRATIVE: CASE EVENT DATE: 20210501
